FAERS Safety Report 7967085-7 (Version None)
Quarter: 2011Q4

REPORT INFORMATION
  Report Type: 
  Country: None (occurrence: None)
  Receive Date: 20111209
  Receipt Date: 20111130
  Transmission Date: 20120403
  Serious: Yes (Hospitalization, Other)
  Sender: FDA-Public Use
  Company Number: JP-JNJFOC-20111201586

PATIENT
  Age: 55 Year
  Sex: Female

DRUGS (6)
  1. RISPERDAL [Suspect]
     Indication: PRODUCT USED FOR UNKNOWN INDICATION
     Route: 048
  2. LEVOMEPROMAZINE [Suspect]
     Indication: PRODUCT USED FOR UNKNOWN INDICATION
     Route: 065
  3. LITHIUM CARBONATE [Suspect]
     Route: 065
  4. LEVOMEPROMAZINE [Suspect]
     Route: 065
  5. LITHIUM CARBONATE [Suspect]
     Indication: PRODUCT USED FOR UNKNOWN INDICATION
     Route: 065
  6. RISPERDAL [Suspect]
     Route: 048

REACTIONS (5)
  - DISORIENTATION [None]
  - PYREXIA [None]
  - GENERAL PHYSICAL CONDITION ABNORMAL [None]
  - HYPERNATRAEMIA [None]
  - INCOHERENT [None]
